FAERS Safety Report 9218238 (Version 2)
Quarter: 2013Q2

REPORT INFORMATION
  Report Type: Spontaneous
  Country: US (occurrence: US)
  Receive Date: 20130408
  Receipt Date: 20130607
  Transmission Date: 20140414
  Serious: No
  Sender: FDA-Public Use
  Company Number: US-009507513-1304USA001627

PATIENT
  Sex: Male
  Weight: 99.77 kg

DRUGS (4)
  1. PEGINTRON [Suspect]
     Dosage: 150MCG/0.5 ML, QW, REDIPEN
     Route: 058
  2. RIBAVIRIN [Suspect]
     Dosage: 200 MG, UNK
     Route: 048
  3. CYMBALTA CAP [Concomitant]
     Dosage: 30 MG, UNK
     Route: 048
  4. TRAMADOL HYDROCHLORIDE [Concomitant]
     Dosage: 50 MG, UNK

REACTIONS (3)
  - Dizziness [Unknown]
  - Fatigue [Not Recovered/Not Resolved]
  - Pain [Not Recovered/Not Resolved]
